FAERS Safety Report 6440312-3 (Version None)
Quarter: 2009Q4

REPORT INFORMATION
  Report Type: 
  Country: None (occurrence: None)
  Receive Date: 20091113
  Receipt Date: 20091103
  Transmission Date: 20100525
  Serious: Yes (Death, Other)
  Sender: FDA-Public Use
  Company Number: US-PFIZER INC-2009274951

PATIENT
  Sex: Male
  Weight: 76 kg

DRUGS (2)
  1. SUTENT [Suspect]
     Indication: METASTATIC RENAL CELL CARCINOMA
     Dosage: 50 MG, UNK
     Dates: start: 20090701, end: 20090806
  2. ZOLEDRONIC ACID [Concomitant]
     Dosage: 3.3 MG, UNK
     Route: 042
     Dates: start: 20090701

REACTIONS (4)
  - DEATH [None]
  - DIARRHOEA [None]
  - DYSPNOEA [None]
  - MUCOSAL INFLAMMATION [None]
